FAERS Safety Report 9385826 (Version 1)
Quarter: 2013Q3

REPORT INFORMATION
  Report Type: Spontaneous
  Country: IT (occurrence: IT)
  Receive Date: 20130705
  Receipt Date: 20130705
  Transmission Date: 20140515
  Serious: Yes (Other)
  Sender: FDA-Public Use
  Company Number: IT-AMGEN-ITASP2013047363

PATIENT
  Age: 54 Year
  Sex: Female

DRUGS (5)
  1. ENBREL [Suspect]
     Indication: RHEUMATOID ARTHRITIS
     Dosage: 50 MG, WEEKLY
     Route: 058
     Dates: start: 20130207, end: 20130607
  2. ADALAT CRONO [Concomitant]
     Dosage: UNK UNK, UNK
     Route: 048
  3. EUTIROX [Concomitant]
     Dosage: 50 UG, UNK
     Route: 048
  4. DIBASE [Concomitant]
     Dosage: UNK UNK, UNK
  5. LANSOPRAZOLE [Concomitant]
     Dosage: UNK UNK, UNK
     Route: 048

REACTIONS (3)
  - Visual acuity reduced [Recovered/Resolved with Sequelae]
  - Conjunctival hyperaemia [Recovered/Resolved with Sequelae]
  - Uveitis [Recovered/Resolved with Sequelae]
